FAERS Safety Report 24121546 (Version 1)
Quarter: 2024Q3

REPORT INFORMATION
  Report Type: Spontaneous
  Country: AU (occurrence: AU)
  Receive Date: 20240722
  Receipt Date: 20240722
  Transmission Date: 20241017
  Serious: Yes (Death, Hospitalization, Other)
  Sender: Karo Pharma
  Company Number: AU-Karo Pharma-2159445

PATIENT
  Sex: Male

DRUGS (5)
  1. TERBINAFINE [Suspect]
     Active Substance: TERBINAFINE
     Indication: Fungal infection
  2. POSACONAZOLE [Suspect]
     Active Substance: POSACONAZOLE
  3. ANIDULAFUNGIN [Suspect]
     Active Substance: ANIDULAFUNGIN
  4. ISAVUCONAZOLE [Suspect]
     Active Substance: ISAVUCONAZOLE
  5. AMPHOTERICIN B [Suspect]
     Active Substance: AMPHOTERICIN B

REACTIONS (1)
  - Death [Fatal]
